FAERS Safety Report 25869403 (Version 2)
Quarter: 2025Q4

REPORT INFORMATION
  Report Type: Spontaneous
  Country: US (occurrence: US)
  Receive Date: 20251001
  Receipt Date: 20251009
  Transmission Date: 20260117
  Serious: Yes (Life-Threatening, Hospitalization, Other)
  Sender: PFIZER
  Company Number: US-PFIZER INC-PV202500117026

PATIENT
  Age: 50 Year
  Sex: Male

DRUGS (9)
  1. MORPHINE SULFATE [Suspect]
     Active Substance: MORPHINE SULFATE
     Indication: Pain
     Dosage: 10 MG/ML (20 ML TOTAL)
     Route: 037
  2. MORPHINE SULFATE [Suspect]
     Active Substance: MORPHINE SULFATE
     Indication: Muscle spasticity
  3. MORPHINE SULFATE [Suspect]
     Active Substance: MORPHINE SULFATE
     Indication: Neuropathy peripheral
  4. BUPIVACAINE [Concomitant]
     Active Substance: BUPIVACAINE
     Indication: Pain
     Dosage: 3.75 MG/ML (20 ML TOTAL)
     Route: 037
  5. BUPIVACAINE [Concomitant]
     Active Substance: BUPIVACAINE
     Indication: Muscle spasticity
  6. BUPIVACAINE [Concomitant]
     Active Substance: BUPIVACAINE
     Indication: Neuropathy peripheral
  7. BACLOFEN [Concomitant]
     Active Substance: BACLOFEN
     Indication: Pain
     Dosage: 200 UG/ML (20 ML TOTAL)
     Route: 037
  8. BACLOFEN [Concomitant]
     Active Substance: BACLOFEN
     Indication: Muscle spasticity
  9. BACLOFEN [Concomitant]
     Active Substance: BACLOFEN
     Indication: Neuropathy peripheral

REACTIONS (3)
  - Overdose [Unknown]
  - Seroma [Unknown]
  - Product administration error [Unknown]
